FAERS Safety Report 8360842-7 (Version None)
Quarter: 2012Q2

REPORT INFORMATION
  Report Type: 
  Country: None (occurrence: None)
  Receive Date: 20120515
  Receipt Date: 20120508
  Transmission Date: 20120825
  Serious: Yes (Hospitalization)
  Sender: FDA-Public Use
  Company Number: US-VERTEX PHARMACEUTICALS INC.-AE-2012-006661

PATIENT
  Sex: Female

DRUGS (3)
  1. RIBAVIRIN [Concomitant]
     Indication: HEPATITIS C
  2. INCIVEK [Suspect]
     Indication: HEPATITIS C
     Dates: start: 20110701, end: 20110923
  3. PEGASYS [Concomitant]
     Indication: HEPATITIS C
     Dates: start: 20110701

REACTIONS (2)
  - BONE MARROW FAILURE [None]
  - ANAEMIA [None]
